FAERS Safety Report 8076431-8 (Version None)
Quarter: 2011Q4

REPORT INFORMATION
  Report Type: 
  Country: None (occurrence: None)
  Receive Date: 20111221
  Receipt Date: 20110923
  Transmission Date: 20120403
  Serious: Yes (Hospitalization)
  Sender: FDA-Public Use
  Company Number: PHHY2011US60671

PATIENT
  Age: 23 Year
  Sex: Male

DRUGS (4)
  1. FOLIC ACID [Concomitant]
  2. EXJADE [Suspect]
     Indication: IRON METABOLISM DISORDER
     Dosage: 1250 MG DAILY, ORAL
     Route: 048
     Dates: start: 20110401
  3. OXYCONTIN [Concomitant]
  4. HYDROXYUREA (HYROXYCARBAMIDE) [Concomitant]

REACTIONS (1)
  - SICKLE CELL ANAEMIA WITH CRISIS [None]
